FAERS Safety Report 8818442 (Version 2)
Quarter: 2012Q4

REPORT INFORMATION
  Report Type: 
  Country: CO (occurrence: CO)
  Receive Date: 20121001
  Receipt Date: 20121120
  Transmission Date: 20130627
  Serious: Yes (Hospitalization, Other)
  Sender: FDA-Public Use
  Company Number: CO-ELI_LILLY_AND_COMPANY-CO201209007499

PATIENT
  Age: 74 Year
  Sex: Female

DRUGS (16)
  1. FORTEO [Suspect]
     Indication: OSTEOPOROSIS
     Dosage: 20 ug, qd
     Route: 058
     Dates: start: 201203
  2. FORTEO [Suspect]
     Dosage: 20 ug, qd
     Route: 058
  3. CALCITRIOL [Concomitant]
  4. FOLIC ACID [Concomitant]
  5. VITAMIN D3 [Concomitant]
  6. METOTREXATE [Concomitant]
  7. PREDNISOLONE [Concomitant]
  8. ENALAPRIL [Concomitant]
  9. FUROSEMIDE [Concomitant]
  10. SPIRONOLACTONE [Concomitant]
  11. CYMBALTA [Concomitant]
     Indication: FIBROMYALGIA
     Dosage: 60 mg, qd
     Dates: start: 2008
  12. ACETAMINOPHEN W/CODEINE [Concomitant]
  13. ACETAMINOPHEN W/HYDROCODONE BITARTRATE [Concomitant]
  14. HUMULIN N [Concomitant]
     Dosage: 20 u, each morning
     Dates: start: 201206
  15. HUMULIN N [Concomitant]
     Dosage: 20 u, each evening
     Dates: start: 201206
  16. HUMULIN R [Concomitant]
     Dosage: 3 u, bid
     Dates: start: 201206

REACTIONS (9)
  - Abdominal hernia [Not Recovered/Not Resolved]
  - Sepsis [Not Recovered/Not Resolved]
  - Pancreatitis [Not Recovered/Not Resolved]
  - Sepsis [Not Recovered/Not Resolved]
  - Cardiac failure [Recovered/Resolved]
  - Renal failure [Recovered/Resolved]
  - Depressed mood [Not Recovered/Not Resolved]
  - Decreased appetite [Not Recovered/Not Resolved]
  - Anaemia [Not Recovered/Not Resolved]
